FAERS Safety Report 14742288 (Version 5)
Quarter: 2019Q1

REPORT INFORMATION
  Report Type: Spontaneous
  Country: US (occurrence: US)
  Receive Date: 20180410
  Receipt Date: 20190205
  Transmission Date: 20190417
  Serious: Yes (Hospitalization)
  Sender: FDA-Public Use
  Company Number: US-PFIZER INC-2018141846

PATIENT
  Age: 48 Year
  Sex: Female
  Weight: 84.81 kg

DRUGS (4)
  1. IBRANCE [Suspect]
     Active Substance: PALBOCICLIB
     Indication: BREAST CANCER METASTATIC
     Dosage: 125 MG, CYCLIC (DAILY, DAY 1-21 Q28 DAYS)
     Route: 048
     Dates: start: 201711, end: 201801
  2. LETROZOLE. [Concomitant]
     Active Substance: LETROZOLE
     Dosage: UNK
  3. FASLODEX [Concomitant]
     Active Substance: FULVESTRANT
     Dosage: UNK
  4. IBRANCE [Suspect]
     Active Substance: PALBOCICLIB
     Dosage: 125 MG, CYCLIC (DAILY, DAY 1-21 Q28 DAYS)
     Route: 048
     Dates: start: 20180404

REACTIONS (14)
  - Pleural effusion [Unknown]
  - Diarrhoea [Unknown]
  - Nausea [Unknown]
  - Red blood cell count decreased [Unknown]
  - Oral pain [Unknown]
  - Dehydration [Unknown]
  - White blood cell count decreased [Unknown]
  - Decreased appetite [Unknown]
  - Pain in jaw [Unknown]
  - Vomiting [Unknown]
  - Protein total decreased [Unknown]
  - Malaise [Unknown]
  - Fatigue [Unknown]
  - Gingivitis [Unknown]
